FAERS Safety Report 11538908 (Version 1)
Quarter: 2015Q3

REPORT INFORMATION
  Report Type: Spontaneous
  Country: US (occurrence: US)
  Receive Date: 20150923
  Receipt Date: 20150923
  Transmission Date: 20151125
  Serious: No
  Sender: FDA-Public Use
  Company Number: PHEH2014US019762

PATIENT
  Age: 90 Year
  Sex: Male

DRUGS (2)
  1. CICLOPIROX. [Suspect]
     Active Substance: CICLOPIROX
     Indication: ONYCHOMYCOSIS
     Dosage: UNK UKN, 3 TABLETS
  2. LAMISIL [Suspect]
     Active Substance: TERBINAFINE HYDROCHLORIDE
     Indication: ONYCHOMYCOSIS
     Dosage: UNK UKN, UNK
     Route: 065

REACTIONS (3)
  - Decreased appetite [Unknown]
  - Malaise [Unknown]
  - Weight decreased [Unknown]
